FAERS Safety Report 5489836-6 (Version None)
Quarter: 2007Q4

REPORT INFORMATION
  Report Type: 
  Country: None (occurrence: None)
  Receive Date: 20071018
  Receipt Date: 20071012
  Transmission Date: 20080405
  Serious: Yes (Other)
  Sender: FDA-Public Use
  Company Number: US-BRISTOL-MYERS SQUIBB COMPANY-13861224

PATIENT
  Age: 2 Year
  Sex: Female

DRUGS (2)
  1. ETOPOSIDE [Suspect]
     Indication: RETINOBLASTOMA
     Dosage: 100 MG/M2/D-CONSECUTIVE 5 DAYS
     Route: 051
  2. CARBOPLATIN [Suspect]
     Indication: RETINOBLASTOMA
     Dosage: 160 MG/M2/D-CONSECUTIVE 5 DAYS
     Route: 051

REACTIONS (1)
  - MYELOID LEUKAEMIA [None]
